FAERS Safety Report 24246180 (Version 2)
Quarter: 2024Q4

REPORT INFORMATION
  Report Type: Report from Study
  Country: CA (occurrence: CA)
  Receive Date: 20240824
  Receipt Date: 20241004
  Transmission Date: 20250115
  Serious: Yes (Death, Other)
  Sender: IPSEN
  Company Number: CA-IPSEN Group, Research and Development-2024-16707

PATIENT
  Sex: Male

DRUGS (5)
  1. LANREOTIDE ACETATE [Suspect]
     Active Substance: LANREOTIDE ACETATE
     Indication: Gastroenteropancreatic neuroendocrine tumour disease
     Route: 058
     Dates: start: 20230111
  2. THYROXINE [Concomitant]
     Active Substance: LEVOTHYROXINE
     Dosage: 0.1MG OD
  3. PERINDOPRIL [Concomitant]
     Active Substance: PERINDOPRIL
     Dosage: 8MG OD
  4. XARELTO [Concomitant]
     Active Substance: RIVAROXABAN
     Dosage: 20MG OD
  5. PREDNISONE [Concomitant]
     Active Substance: PREDNISONE
     Dosage: 5-10MG OD

REACTIONS (1)
  - Pneumonia [Fatal]
